FAERS Safety Report 9570953 (Version 5)
Quarter: 2014Q2

REPORT INFORMATION
  Report Type: Spontaneous
  Country: US (occurrence: US)
  Receive Date: 20131001
  Receipt Date: 20140509
  Transmission Date: 20141212
  Serious: Yes (Hospitalization, Other)
  Sender: FDA-Public Use
  Company Number: US-ASTRAZENECA-2013SE69883

PATIENT
  Age: 57 Year
  Sex: Female
  Weight: 81.2 kg

DRUGS (43)
  1. CRESTOR [Suspect]
     Indication: BLOOD CHOLESTEROL INCREASED
     Route: 048
     Dates: start: 201309
  2. CRESTOR [Suspect]
     Indication: BLOOD CHOLESTEROL ABNORMAL
     Route: 048
     Dates: start: 201309
  3. CRESTOR [Suspect]
     Indication: BLOOD CHOLESTEROL INCREASED
     Route: 048
     Dates: start: 201310, end: 20131231
  4. CRESTOR [Suspect]
     Indication: BLOOD CHOLESTEROL ABNORMAL
     Route: 048
     Dates: start: 201310, end: 20131231
  5. CRESTOR [Suspect]
     Indication: BLOOD CHOLESTEROL INCREASED
     Route: 048
     Dates: start: 201310, end: 20140101
  6. CRESTOR [Suspect]
     Indication: BLOOD CHOLESTEROL ABNORMAL
     Route: 048
     Dates: start: 201310, end: 20140101
  7. CRESTOR [Suspect]
     Indication: BLOOD CHOLESTEROL INCREASED
     Route: 048
  8. CRESTOR [Suspect]
     Indication: BLOOD CHOLESTEROL ABNORMAL
     Route: 048
  9. CRESTOR [Suspect]
     Indication: BLOOD CHOLESTEROL INCREASED
     Route: 048
  10. CRESTOR [Suspect]
     Indication: BLOOD CHOLESTEROL ABNORMAL
     Route: 048
  11. CRESTOR [Suspect]
     Indication: BLOOD CHOLESTEROL INCREASED
     Route: 048
     Dates: start: 20140429
  12. CRESTOR [Suspect]
     Indication: BLOOD CHOLESTEROL ABNORMAL
     Route: 048
     Dates: start: 20140429
  13. TOPROL XL [Suspect]
     Indication: BLOOD PRESSURE ABNORMAL
     Route: 048
     Dates: start: 200807
  14. TOPROL XL [Suspect]
     Indication: CORONARY ARTERY DISEASE
     Route: 048
     Dates: start: 200807
  15. TOPROL XL [Suspect]
     Indication: ISCHAEMIC HEART DISEASE PROPHYLAXIS
     Route: 048
     Dates: start: 200807
  16. TOPROL XL [Suspect]
     Indication: BLOOD PRESSURE ABNORMAL
     Route: 048
     Dates: start: 2008
  17. TOPROL XL [Suspect]
     Indication: CORONARY ARTERY DISEASE
     Route: 048
     Dates: start: 2008
  18. TOPROL XL [Suspect]
     Indication: ISCHAEMIC HEART DISEASE PROPHYLAXIS
     Route: 048
     Dates: start: 2008
  19. ASA [Concomitant]
  20. NITROGLYCERIN [Concomitant]
     Indication: CHEST PAIN
     Route: 060
  21. NITROGLYCERIN [Concomitant]
     Indication: CHEST DISCOMFORT
     Route: 060
  22. TRAMADOL [Concomitant]
     Indication: PAIN
     Route: 048
     Dates: start: 2008
  23. CLOPIDOGREL [Concomitant]
     Indication: AORTIC OCCLUSION
  24. ISOSORBIDE MONONITRATE [Concomitant]
  25. ENALAPRIL MALEATE [Concomitant]
     Route: 048
  26. METOPROLOL [Concomitant]
  27. PANTOPRAZOLE SODIUM [Concomitant]
     Indication: GASTROOESOPHAGEAL REFLUX DISEASE
  28. XANAX [Concomitant]
     Indication: ANXIETY
     Dosage: PRN, GENERIC
  29. XANAX [Concomitant]
     Indication: STRESS
     Dosage: PRN, GENERIC
  30. LIPITOR [Concomitant]
  31. STATIN [Concomitant]
     Dates: start: 2008
  32. 6 OTHER MEDICATIONS [Concomitant]
     Indication: CORONARY ARTERY DISEASE
  33. MEDICATION TO SLEEP AT NIGHT [Concomitant]
     Indication: SLEEP DISORDER
  34. SIMVASTATIN [Concomitant]
  35. PLAVIX [Concomitant]
     Indication: CARDIOVASCULAR EVENT PROPHYLAXIS
     Route: 048
  36. ASPIRIN [Concomitant]
     Indication: CARDIOVASCULAR EVENT PROPHYLAXIS
     Route: 048
  37. ISOSORBIDE XR [Concomitant]
     Indication: ISCHAEMIC HEART DISEASE PROPHYLAXIS
  38. ENALAPRIL [Concomitant]
     Indication: ISCHAEMIC HEART DISEASE PROPHYLAXIS
  39. PANTOPRAZOLE SODIUM DR [Concomitant]
     Indication: ISCHAEMIC HEART DISEASE PROPHYLAXIS
  40. ARMOUR THYROID [Concomitant]
     Indication: THYROID DISORDER
     Route: 048
  41. COQ10 [Concomitant]
     Route: 048
     Dates: start: 2012
  42. POTASSIUM MAGNESIUM [Concomitant]
     Indication: MUSCLE ATROPHY
     Route: 048
     Dates: start: 2010
  43. OTHER CARDIAC MEDICATIONS [Concomitant]

REACTIONS (18)
  - Myocardial infarction [Recovered/Resolved]
  - Haemorrhagic diathesis [Not Recovered/Not Resolved]
  - Muscular weakness [Not Recovered/Not Resolved]
  - Urine odour abnormal [Not Recovered/Not Resolved]
  - Malaise [Not Recovered/Not Resolved]
  - Hypotension [Not Recovered/Not Resolved]
  - Blood cholesterol increased [Unknown]
  - Pain in extremity [Not Recovered/Not Resolved]
  - Musculoskeletal discomfort [Not Recovered/Not Resolved]
  - Myalgia [Not Recovered/Not Resolved]
  - Stress [Unknown]
  - Weight decreased [Unknown]
  - Feeling abnormal [Unknown]
  - Mobility decreased [Unknown]
  - Influenza like illness [Unknown]
  - Muscle spasms [Not Recovered/Not Resolved]
  - Intentional product misuse [Unknown]
  - Drug dose omission [Not Recovered/Not Resolved]
